FAERS Safety Report 12464386 (Version 1)
Quarter: 2016Q2

REPORT INFORMATION
  Report Type: Spontaneous
  Country: US (occurrence: None)
  Receive Date: 20160613
  Receipt Date: 20160613
  Transmission Date: 20160815
  Serious: Yes (Hospitalization)
  Sender: FDA-Public Use
  Company Number: None

PATIENT
  Age: 56 Year
  Sex: Female

DRUGS (4)
  1. AMLODIPINE [Concomitant]
     Active Substance: AMLODIPINE BESYLATE
  2. EXEMESTANE. [Concomitant]
     Active Substance: EXEMESTANE
  3. LOSARTAN POT [Concomitant]
     Active Substance: LOSARTAN POTASSIUM
  4. AFINITOR [Suspect]
     Active Substance: EVEROLIMUS
     Indication: NEOPLASM MALIGNANT
     Route: 048
     Dates: start: 20150307

REACTIONS (1)
  - Infection [None]

NARRATIVE: CASE EVENT DATE: 201606
